FAERS Safety Report 12810950 (Version 3)
Quarter: 2016Q4

REPORT INFORMATION
  Report Type: Spontaneous
  Country: US (occurrence: US)
  Receive Date: 20161005
  Receipt Date: 20161204
  Transmission Date: 20170207
  Serious: Yes (Hospitalization, Other)
  Sender: FDA-Public Use
  Company Number: US-GLAXOSMITHKLINE-US2016144860

PATIENT
  Age: 67 Year
  Sex: Female

DRUGS (2)
  1. LOVAZA [Suspect]
     Active Substance: OMEGA-3-ACID ETHYL ESTERS
     Indication: HYPERCHOLESTEROLAEMIA
     Dosage: 2 G, BID
     Route: 048
     Dates: start: 2009
  2. METFORMIN [Concomitant]
     Active Substance: METFORMIN HYDROCHLORIDE

REACTIONS (11)
  - Vomiting [Recovering/Resolving]
  - Hip arthroplasty [Recovering/Resolving]
  - Abdominal discomfort [Unknown]
  - Pruritus [Unknown]
  - Dysgeusia [Unknown]
  - Rash generalised [Unknown]
  - Product quality issue [Unknown]
  - Nausea [Recovering/Resolving]
  - Therapeutic response unexpected [Unknown]
  - Wound [Not Recovered/Not Resolved]
  - Underdose [Unknown]

NARRATIVE: CASE EVENT DATE: 201510
